FAERS Safety Report 5802242-7 (Version None)
Quarter: 2008Q3

REPORT INFORMATION
  Report Type: 
  Country: None (occurrence: None)
  Receive Date: 20080707
  Receipt Date: 20080625
  Transmission Date: 20090109
  Serious: Yes (Other)
  Sender: FDA-Public Use
  Company Number: AU-PFIZER INC-2008053933

PATIENT
  Sex: Male

DRUGS (6)
  1. CHANTIX [Suspect]
  2. NEXIUM [Concomitant]
  3. EFFEXOR [Concomitant]
  4. XANAX [Concomitant]
  5. SIMVASTATIN [Concomitant]
  6. ACETYLSALICYLIC ACID SRT [Concomitant]

REACTIONS (9)
  - ABNORMAL DREAMS [None]
  - ANXIETY [None]
  - CLAUSTROPHOBIA [None]
  - DEPRESSION [None]
  - INSOMNIA [None]
  - ORAL CANDIDIASIS [None]
  - PERSONALITY DISORDER [None]
  - PNEUMONIA [None]
  - TENSION [None]
